FAERS Safety Report 10181897 (Version 1)
Quarter: 2014Q2

REPORT INFORMATION
  Report Type: Report from Study
  Country: US (occurrence: US)
  Receive Date: 20140519
  Receipt Date: 20140519
  Transmission Date: 20141212
  Serious: Yes (Hospitalization)
  Sender: FDA-Public Use
  Company Number: US-TEVA-482216USA

PATIENT
  Age: 1 Year
  Sex: Female
  Weight: 11.65 kg

DRUGS (9)
  1. LESTAURTINIB [Suspect]
     Dosage: LAST DOSE PRIOR TO EVENT 11-FEB-2014
     Dates: start: 20130717
  2. ETOPOSIDE [Suspect]
     Dosage: LAST DOSE PRIOR TO EVENT 10-MAR-2014
     Dates: start: 20130717
  3. MERCAPTOPURINE [Suspect]
     Dates: start: 20130717
  4. METHOTREXATE [Suspect]
     Dosage: LAST DOSE PRIOR TO EVENT 18-FEB-2014
     Dates: start: 20130717
  5. VINCRISTINE [Suspect]
     Dosage: LAST DOSE PRIOR TO EVENT 11-FEB-2014
     Dates: start: 20130717
  6. CYCLOPHOSPHAMIDE [Suspect]
     Dosage: LAST DOSE PRIOR TO EVENT 10-MAR-2014
     Dates: start: 20130717
  7. CYTARABINE [Suspect]
     Dosage: LAST DOSE PRIOR TO EVENT 05-APR-2014
     Dates: start: 20130717
  8. DEXAMETHASONE [Suspect]
     Dosage: LAST DOSE PRIOR TO EVENT 15-FEB-2014
     Dates: start: 20130717
  9. PEG-L-ASPARAGINASE [Suspect]
     Dosage: LAST DOSE PRIOR TO EVENT 05-APR-2014
     Dates: start: 20130717

REACTIONS (1)
  - Febrile neutropenia [Recovering/Resolving]
